FAERS Safety Report 9691254 (Version 1)
Quarter: 2013Q4

REPORT INFORMATION
  Report Type: Spontaneous
  Country: CA (occurrence: CA)
  Receive Date: 20131115
  Receipt Date: 20131115
  Transmission Date: 20140711
  Serious: Yes (Other)
  Sender: FDA-Public Use
  Company Number: PHHY2013CA130281

PATIENT
  Age: 49 Year
  Sex: Female

DRUGS (11)
  1. GILENYA [Suspect]
     Dates: start: 20130628
  2. TOPAMAX [Concomitant]
  3. SINEMET [Concomitant]
  4. COUMADIN [Concomitant]
  5. ASPIRIN [Concomitant]
  6. MINOCIN [Concomitant]
  7. ACTONEL [Concomitant]
     Dosage: UNK
  8. VITAMIN D [Concomitant]
  9. SYNTHROID [Concomitant]
  10. FOLIC ACID [Concomitant]
  11. PANTOLOC [Concomitant]

REACTIONS (2)
  - Tachycardia paroxysmal [Unknown]
  - Suffocation feeling [Unknown]
